FAERS Safety Report 7368232-0 (Version None)
Quarter: 2011Q1

REPORT INFORMATION
  Report Type: 
  Country: None (occurrence: None)
  Receive Date: 20110323
  Receipt Date: 20110320
  Transmission Date: 20110831
  Serious: No
  Sender: FDA-Public Use
  Company Number: US-PFIZER INC-2011060887

PATIENT
  Sex: Female
  Weight: 81.633 kg

DRUGS (2)
  1. EXFORGE [Concomitant]
     Dosage: UNK
  2. LYRICA [Suspect]
     Indication: PAIN
     Dosage: 75 MG, DAILY
     Route: 048

REACTIONS (1)
  - PAIN [None]
